FAERS Safety Report 9098729 (Version 2)
Quarter: 2013Q2

REPORT INFORMATION
  Report Type: Spontaneous
  Country: US (occurrence: US)
  Receive Date: 20130213
  Receipt Date: 20130610
  Transmission Date: 20140414
  Serious: Yes (Other)
  Sender: FDA-Public Use
  Company Number: US-FRI-1000042550

PATIENT
  Age: 72 Year
  Sex: Male
  Weight: 118 kg

DRUGS (17)
  1. DALIRESP [Suspect]
     Indication: CHRONIC OBSTRUCTIVE PULMONARY DISEASE
     Dosage: 500 MCG
     Route: 048
     Dates: start: 20121214, end: 20130209
  2. CRESTOR [Concomitant]
     Indication: BLOOD CHOLESTEROL INCREASED
     Dosage: 10 MG
  3. AMARYL [Concomitant]
     Indication: DIABETES MELLITUS
     Dosage: 8 MG
  4. LANTUS [Concomitant]
     Indication: DIABETES MELLITUS
     Dosage: 42 UNITS BID
  5. METFORMIN [Concomitant]
     Indication: DIABETES MELLITUS
     Dosage: 1000 MG
  6. LISINOPRIL [Concomitant]
     Indication: HYPERTENSION
     Dosage: 40 MG
  7. CARVEDILOL [Concomitant]
     Indication: HYPERTENSION
     Dosage: 12.5 MG
  8. LASIX [Concomitant]
     Indication: HYPERTENSION
     Dosage: 80 MG
  9. PACERONE [Concomitant]
     Indication: HYPERTENSION
     Dosage: 1 MG
  10. TESTOSTERONE [Concomitant]
  11. ADVAIR [Concomitant]
     Indication: CHRONIC OBSTRUCTIVE PULMONARY DISEASE
     Dosage: 500/50 MCG BID
  12. SINGULAIR [Concomitant]
     Indication: CHRONIC OBSTRUCTIVE PULMONARY DISEASE
     Dosage: 10 MG
  13. NASONEX [Concomitant]
     Indication: CHRONIC OBSTRUCTIVE PULMONARY DISEASE
     Dosage: 1 SPRAY TO EACH NOSTRIL BID
     Route: 045
  14. TIOTROPIUM [Concomitant]
     Indication: CHRONIC OBSTRUCTIVE PULMONARY DISEASE
     Dosage: FOUR TIMES A DAY
  15. FLOMAX [Concomitant]
     Indication: BENIGN PROSTATIC HYPERPLASIA
     Dosage: 0.4 MG
  16. CALCITRIOL [Concomitant]
     Dosage: 0.05 MCG
  17. MECLOZINE [Concomitant]
     Dosage: 25 MG

REACTIONS (3)
  - Exophthalmos [Recovered/Resolved]
  - Headache [Recovered/Resolved]
  - Weight decreased [Recovered/Resolved]
